FAERS Safety Report 16949223 (Version 2)
Quarter: 2019Q4

REPORT INFORMATION
  Report Type: Spontaneous
  Country: US (occurrence: US)
  Receive Date: 20191023
  Receipt Date: 20191116
  Transmission Date: 20200122
  Serious: Yes (Life-Threatening, Hospitalization, Other)
  Sender: FDA-Public Use
  Company Number: US-AUROBINDO-AUR-APL-2019-067789

PATIENT
  Age: 87 Year
  Sex: Female

DRUGS (4)
  1. LEVOTHYROXINE. [Concomitant]
     Active Substance: LEVOTHYROXINE
     Dosage: UNK, INCREASED
     Route: 065
  2. HYDROXYUREA. [Concomitant]
     Active Substance: HYDROXYUREA
     Indication: HYPOTHYROIDISM
     Dosage: UNK
     Route: 065
  3. LEVOTHYROXINE. [Concomitant]
     Active Substance: LEVOTHYROXINE
     Indication: HYPOTHYROIDISM
     Dosage: UNK
     Route: 065
  4. AMIODARONE HYDROCHLORIDE. [Suspect]
     Active Substance: AMIODARONE HYDROCHLORIDE
     Indication: VENTRICULAR TACHYCARDIA
     Dosage: UNK
     Route: 065

REACTIONS (8)
  - Dyspnoea exertional [Not Recovered/Not Resolved]
  - Hypoxia [Not Recovered/Not Resolved]
  - Transaminases increased [Recovered/Resolved]
  - Influenza [Recovered/Resolved]
  - Drug-induced liver injury [Recovering/Resolving]
  - Orthopnoea [Recovered/Resolved]
  - Pulmonary toxicity [Not Recovered/Not Resolved]
  - Rhinorrhoea [Recovered/Resolved]
